FAERS Safety Report 20318492 (Version 1)
Quarter: 2022Q1

REPORT INFORMATION
  Report Type: Spontaneous
  Country: CH (occurrence: CH)
  Receive Date: 20220110
  Receipt Date: 20220110
  Transmission Date: 20220424
  Serious: Yes (Other)
  Sender: FDA-Public Use
  Company Number: None

PATIENT
  Age: 70 Year
  Sex: Male
  Weight: 46 kg

DRUGS (5)
  1. COMIRNATY [Suspect]
     Active Substance: TOZINAMERAN
     Indication: COVID-19 immunisation
     Dosage: DOSE 1, SINGLE
     Route: 030
     Dates: start: 20210419, end: 20210419
  2. LORAZEPAM [Suspect]
     Active Substance: LORAZEPAM
     Indication: Anxiety
     Dosage: 1 MG, AS NEEDED
     Route: 048
  3. HERBALS [Concomitant]
     Active Substance: HERBALS
  4. D-MANNOSE [Concomitant]
  5. HERBALS [Concomitant]
     Active Substance: HERBALS

REACTIONS (7)
  - Epilepsy [Recovered/Resolved]
  - Diplopia [Recovered/Resolved]
  - Hypotension [Recovered/Resolved]
  - Influenza like illness [Recovered/Resolved]
  - Syncope [Recovered/Resolved]
  - Vertigo [Recovered/Resolved]
  - Dizziness [Unknown]

NARRATIVE: CASE EVENT DATE: 20210420
